FAERS Safety Report 8024057-4 (Version None)
Quarter: 2012Q1

REPORT INFORMATION
  Report Type: 
  Country: None (occurrence: None)
  Receive Date: 20120105
  Receipt Date: 20111230
  Transmission Date: 20120608
  Serious: No
  Sender: FDA-Public Use
  Company Number: US-JNJFOC-20120100821

PATIENT
  Age: 57 Year
  Sex: Female
  Weight: 68.04 kg

DRUGS (3)
  1. INVEGA SUSTENNA [Suspect]
     Indication: MOOD SWINGS
     Route: 030
     Dates: start: 20111101
  2. PRISTIQ [Concomitant]
     Indication: DEPRESSION
     Route: 048
  3. INVEGA SUSTENNA [Suspect]
     Indication: BIPOLAR DISORDER
     Route: 030
     Dates: start: 20111101

REACTIONS (3)
  - CONFUSIONAL STATE [None]
  - IMPAIRED DRIVING ABILITY [None]
  - TREMOR [None]
